FAERS Safety Report 6423686-9 (Version None)
Quarter: 2009Q4

REPORT INFORMATION
  Report Type: 
  Country: None (occurrence: None)
  Receive Date: 20091102
  Receipt Date: 20091019
  Transmission Date: 20100525
  Serious: Yes (Other)
  Sender: FDA-Public Use
  Company Number: GB-PFIZER INC-2009263115

PATIENT
  Sex: Female

DRUGS (1)
  1. NICOTINE [Suspect]
     Indication: SMOKING CESSATION THERAPY
     Dosage: 5/6 CARTRIDGES DAILY
     Route: 055
     Dates: start: 20080325

REACTIONS (5)
  - DEPENDENCE [None]
  - GINGIVAL DISORDER [None]
  - GINGIVAL RECESSION [None]
  - INTENTIONAL DRUG MISUSE [None]
  - LOOSE TOOTH [None]
